FAERS Safety Report 10100009 (Version 2)
Quarter: 2015Q2

REPORT INFORMATION
  Report Type: Spontaneous
  Country: GB (occurrence: GB)
  Receive Date: 20140423
  Receipt Date: 20150415
  Transmission Date: 20150821
  Serious: Yes (Other)
  Sender: FDA-Public Use
  Company Number: GB-ACTAVIS-2014-07909

PATIENT
  Sex: Female
  Weight: 64 kg

DRUGS (4)
  1. CAPECITABINE (UNKNOWN) [Suspect]
     Active Substance: CAPECITABINE
     Indication: BREAST CANCER METASTATIC
     Dosage: 2000/1500 MG, BID (2/DAY), DAY 1 TO DAY 14, CYCLE 1
     Route: 065
     Dates: end: 20050216
  2. CAPECITABINE (UNKNOWN) [Suspect]
     Active Substance: CAPECITABINE
     Dosage: 1500/1000 MG, UNK, CYCLE 2
     Route: 065
     Dates: end: 20050216
  3. VINORELBINE [Suspect]
     Active Substance: VINORELBINE\VINORELBINE TARTRATE
     Indication: BREAST CANCER METASTATIC
     Dosage: 60 MG, 1/21 DAYS, DAY 1, CYCLE 2, CYCLICAL
     Route: 042
     Dates: start: 20041027
  4. VINORELBINE [Suspect]
     Active Substance: VINORELBINE\VINORELBINE TARTRATE
     Dosage: 60 MG, 1/ 21 DAYS, DAY 1, CYCLE 1, CYCLICAL
     Route: 042
     Dates: start: 20040928

REACTIONS (2)
  - Haematotoxicity [Unknown]
  - Gastrointestinal toxicity [Unknown]
